FAERS Safety Report 5736100-3 (Version None)
Quarter: 2008Q2

REPORT INFORMATION
  Report Type: 
  Country: None (occurrence: None)
  Receive Date: 20080513
  Receipt Date: 20080509
  Transmission Date: 20081010
  Serious: Yes (Death)
  Sender: FDA-Public Use
  Company Number: AU-BRISTOL-MYERS SQUIBB COMPANY-14085757

PATIENT
  Sex: Female

DRUGS (7)
  1. QUESTRAN LIGHT [Suspect]
     Route: 048
     Dates: start: 20071228
  2. PANTOPRAZOLE SODIUM [Concomitant]
     Route: 048
  3. FELODUR [Concomitant]
     Route: 048
  4. PERINDOPRIL ERBUMINE [Concomitant]
     Route: 048
  5. PRAZOSIN HCL [Concomitant]
  6. EZETROL [Concomitant]
     Route: 048
  7. SPIRIVA [Concomitant]

REACTIONS (1)
  - PULMONARY EMBOLISM [None]
